FAERS Safety Report 23629174 (Version 1)
Quarter: 2024Q1

REPORT INFORMATION
  Report Type: Spontaneous
  Country: BR (occurrence: BR)
  Receive Date: 20240313
  Receipt Date: 20240313
  Transmission Date: 20240409
  Serious: Yes (Other)
  Sender: FDA-Public Use
  Company Number: BR-BoehringerIngelheim-2024-BI-014529

PATIENT
  Age: 68 Year
  Sex: Male

DRUGS (1)
  1. GLYXAMBI [Suspect]
     Active Substance: EMPAGLIFLOZIN\LINAGLIPTIN
     Indication: Type 2 diabetes mellitus
     Dosage: FORM STRENGTH: 25 (UNIT OF MEASUREMENT NOT SPECIFIED).

REACTIONS (2)
  - Myocardial infarction [Unknown]
  - Hypertension [Unknown]
